FAERS Safety Report 10108554 (Version 1)
Quarter: 2014Q2

REPORT INFORMATION
  Report Type: Other
  Country: GB (occurrence: GB)
  Receive Date: 20140425
  Receipt Date: 20140425
  Transmission Date: 20141212
  Serious: Yes (Other)
  Sender: FDA-Public Use
  Company Number: GB-BRISTOL-MYERS SQUIBB COMPANY-20667267

PATIENT
  Sex: Female

DRUGS (2)
  1. METFORMIN HCL [Suspect]
     Indication: GESTATIONAL DIABETES
  2. INSULIN [Suspect]
     Indication: GESTATIONAL DIABETES

REACTIONS (4)
  - Perineal injury [Unknown]
  - Postpartum haemorrhage [Unknown]
  - Live birth [Recovered/Resolved]
  - Maternal exposure during pregnancy [Recovered/Resolved]
